FAERS Safety Report 18358941 (Version 1)
Quarter: 2020Q4

REPORT INFORMATION
  Report Type: Spontaneous
  Country: US (occurrence: US)
  Receive Date: 20201008
  Receipt Date: 20201008
  Transmission Date: 20210114
  Serious: No
  Sender: FDA-Public Use
  Company Number: US-AUROBINDO-AUR-APL-2019-105488

PATIENT
  Age: 67 Year
  Sex: Female
  Weight: 93 kg

DRUGS (14)
  1. OMEPRAZOLE DELAYED-RELEASE CAPSULES USP 20MG [Suspect]
     Active Substance: OMEPRAZOLE
     Indication: OESOPHAGEAL SPASM
  2. LISINOPRIL. [Concomitant]
     Active Substance: LISINOPRIL
     Indication: PRODUCT USED FOR UNKNOWN INDICATION
     Dosage: 10 MILLIGRAM
     Route: 065
  3. FLUOXETINE [Concomitant]
     Active Substance: FLUOXETINE HYDROCHLORIDE
     Indication: PRODUCT USED FOR UNKNOWN INDICATION
     Dosage: 20 MILLIGRAM
     Route: 065
  4. OMEPRAZOLE DELAYED-RELEASE CAPSULES USP 40MG [Suspect]
     Active Substance: OMEPRAZOLE
     Indication: OESOPHAGEAL SPASM
  5. OMEPRAZOLE DELAYED-RELEASE CAPSULES USP 10MG [Suspect]
     Active Substance: OMEPRAZOLE
     Indication: OESOPHAGEAL SPASM
     Dosage: 1 DOSAGE FORM (TAKE ONE TABLET)
     Route: 065
     Dates: start: 20191210
  6. OMEPRAZOLE DELAYED-RELEASE CAPSULES USP 20MG [Suspect]
     Active Substance: OMEPRAZOLE
     Indication: GASTROOESOPHAGEAL REFLUX DISEASE
     Dosage: UNK, TWO TIMES A DAY
     Route: 065
     Dates: start: 201908, end: 201908
  7. THYROXIN [Concomitant]
     Active Substance: LEVOTHYROXINE
     Indication: PRODUCT USED FOR UNKNOWN INDICATION
     Dosage: 112 MICROGRAM, ONCE A DAY
     Route: 065
  8. OMEPRAZOLE DELAYED-RELEASE CAPSULES USP 10MG [Suspect]
     Active Substance: OMEPRAZOLE
     Indication: GASTROOESOPHAGEAL REFLUX DISEASE
     Dosage: UNK, TWO TIMES A DAY
     Route: 065
     Dates: start: 201909, end: 201909
  9. CARDIZEM [Concomitant]
     Active Substance: DILTIAZEM HYDROCHLORIDE
     Indication: PRODUCT USED FOR UNKNOWN INDICATION
     Dosage: 180 MILLIGRAM
     Route: 065
  10. ZYRTEC [Concomitant]
     Active Substance: CETIRIZINE HYDROCHLORIDE
     Indication: PRODUCT USED FOR UNKNOWN INDICATION
     Dosage: 10 MILLIGRAM
     Route: 065
  11. OMEPRAZOLE DELAYED-RELEASE CAPSULES USP 40MG [Suspect]
     Active Substance: OMEPRAZOLE
     Indication: GASTROOESOPHAGEAL REFLUX DISEASE
     Dosage: UNK, TWO TIMES A DAY
     Route: 065
     Dates: start: 201902, end: 201907
  12. CALCIUM [Concomitant]
     Active Substance: CALCIUM
     Indication: PRODUCT USED FOR UNKNOWN INDICATION
     Dosage: 500 MILLIGRAM
     Route: 065
  13. PROTONIX [Suspect]
     Active Substance: PANTOPRAZOLE SODIUM
     Indication: GASTROOESOPHAGEAL REFLUX DISEASE
     Dosage: UNK
     Route: 065
  14. VITAMIN D3 [Concomitant]
     Active Substance: CHOLECALCIFEROL
     Indication: PRODUCT USED FOR UNKNOWN INDICATION
     Dosage: 1700 UNITS
     Route: 065

REACTIONS (5)
  - Arthritis [Not Recovered/Not Resolved]
  - Gastrooesophageal reflux disease [Not Recovered/Not Resolved]
  - Arthralgia [Not Recovered/Not Resolved]
  - Gout [Not Recovered/Not Resolved]
  - Discomfort [Not Recovered/Not Resolved]
